FAERS Safety Report 25687043 (Version 1)
Quarter: 2025Q3

REPORT INFORMATION
  Report Type: Spontaneous
  Country: US (occurrence: US)
  Receive Date: 20250816
  Receipt Date: 20250816
  Transmission Date: 20251021
  Serious: Yes (Death, Life-Threatening, Disabling, Other)
  Sender: CHATTEM
  Company Number: US-OPELLA-2025OHG024728

PATIENT
  Sex: Female

DRUGS (1)
  1. GOLD BOND ORIGINAL STRENGTH [Suspect]
     Active Substance: MENTHOL
     Indication: Product used for unknown indication

REACTIONS (3)
  - Mesothelioma malignant [Fatal]
  - Exposure to chemical pollution [Fatal]
  - Occupational exposure to toxic agent [Fatal]
